FAERS Safety Report 25373024 (Version 1)
Quarter: 2025Q2

REPORT INFORMATION
  Report Type: Spontaneous
  Country: US (occurrence: None)
  Receive Date: 20250528
  Receipt Date: 20250528
  Transmission Date: 20250716
  Serious: Yes (Hospitalization)
  Sender: FDA-CTU
  Company Number: None

PATIENT
  Sex: Female

DRUGS (4)
  1. OPSUMIT [Suspect]
     Active Substance: MACITENTAN
     Indication: Pulmonary arterial hypertension
     Dosage: FREQUENCY : DAILY;?
     Route: 048
     Dates: start: 20230624
  2. ELIQUIS [Suspect]
     Active Substance: APIXABAN
  3. METOPROLOL [Concomitant]
     Active Substance: METOPROLOL
  4. OPSUMIT [Concomitant]
     Active Substance: MACITENTAN

REACTIONS (3)
  - Small intestinal obstruction [None]
  - Thrombosis [None]
  - Hypertension [None]
